FAERS Safety Report 10341275 (Version 3)
Quarter: 2015Q1

REPORT INFORMATION
  Report Type: Spontaneous
  Country: CL (occurrence: CL)
  Receive Date: 20140725
  Receipt Date: 20150302
  Transmission Date: 20150720
  Serious: Yes (Hospitalization, Other)
  Sender: FDA-Public Use
  Company Number: CL-009507513-1407CHL010861

PATIENT
  Age: 26 Year
  Sex: Female

DRUGS (1)
  1. NUVARING [Suspect]
     Active Substance: ETHINYL ESTRADIOL\ETONOGESTREL
     Indication: CONTRACEPTION
     Dosage: DELIVERS 0.120MG/0.015 MG PER DAY, MONTHLY
     Route: 067
     Dates: start: 20100701

REACTIONS (7)
  - Menorrhagia [Unknown]
  - Gastrectomy [Unknown]
  - Metrorrhagia [Unknown]
  - Incorrect drug administration duration [Unknown]
  - Hepatic vein thrombosis [Recovered/Resolved]
  - Menorrhagia [Unknown]
  - Drug administration error [Unknown]

NARRATIVE: CASE EVENT DATE: 2014
